FAERS Safety Report 7788603-8 (Version None)
Quarter: 2011Q3

REPORT INFORMATION
  Report Type: 
  Country: None (occurrence: None)
  Receive Date: 20110928
  Receipt Date: 20110914
  Transmission Date: 20111222
  Serious: Yes (Other)
  Sender: FDA-Public Use
  Company Number: 982054

PATIENT
  Age: 76 Year
  Sex: Female
  Weight: 97.73 kg

DRUGS (4)
  1. PROPOFOL [Suspect]
     Indication: ANAESTHESIA PROCEDURE
     Dosage: 140 MG, X1, INTRAVENOUS (NOT OTHERWISE SPECIFIED)
     Route: 042
     Dates: start: 20110714, end: 20110714
  2. VITAMIN D [Concomitant]
  3. ASPIRIN [Concomitant]
  4. BYSTOLIC [Concomitant]

REACTIONS (4)
  - CHILLS [None]
  - PALLOR [None]
  - NAUSEA [None]
  - HEADACHE [None]
